FAERS Safety Report 6216948-1 (Version None)
Quarter: 2009Q2

REPORT INFORMATION
  Report Type: 
  Country: None (occurrence: None)
  Receive Date: 20090604
  Receipt Date: 20090525
  Transmission Date: 20091009
  Serious: Yes (Hospitalization)
  Sender: FDA-Public Use
  Company Number: 2009AP002124

PATIENT
  Age: 83 Year
  Sex: Male

DRUGS (5)
  1. LEFLUNOMIDE [Suspect]
     Indication: RHEUMATOID ARTHRITIS
  2. SPIRONOLACTONE [Concomitant]
  3. TERAZOSIN HCL [Concomitant]
  4. TRIAMTERENE AND HYDROCHLOROTHIAZIDE [Concomitant]
  5. METHOTREXATE [Concomitant]

REACTIONS (5)
  - CD4/CD8 RATIO INCREASED [None]
  - ORGANISING PNEUMONIA [None]
  - PNEUMONITIS [None]
  - RESPIRATORY FAILURE [None]
  - SINUS TACHYCARDIA [None]
